FAERS Safety Report 9267292 (Version 1)
Quarter: 2013Q2

REPORT INFORMATION
  Report Type: Spontaneous
  Country: US (occurrence: US)
  Receive Date: 20130502
  Receipt Date: 20130502
  Transmission Date: 20140414
  Serious: Yes (Hospitalization)
  Sender: FDA-Public Use
  Company Number: US-BAYER-2013-053359

PATIENT
  Age: 43 Year
  Sex: Female

DRUGS (3)
  1. YASMIN [Suspect]
  2. IRON [CITRIC ACID,FERROUS SULFATE] [Concomitant]
  3. SALINE [Concomitant]

REACTIONS (1)
  - Cerebrovascular accident [None]
